FAERS Safety Report 16028992 (Version 1)
Quarter: 2019Q2

REPORT INFORMATION
  Report Type: Spontaneous
  Country: US (occurrence: US)
  Receive Date: 20190303
  Receipt Date: 20190303
  Transmission Date: 20190711
  Serious: Yes (Disabling)
  Sender: FDA-Public Use
  Company Number: None

PATIENT
  Age: 13 Year
  Sex: Female
  Weight: 58.5 kg

DRUGS (1)
  1. OSELTAMIVIR [Suspect]
     Active Substance: OSELTAMIVIR
     Indication: INFLUENZA
     Dosage: ?          QUANTITY:12.5 ML;?
     Route: 048
     Dates: start: 20180208, end: 20180211

REACTIONS (3)
  - Disturbance in attention [None]
  - Depressed mood [None]
  - Depression [None]

NARRATIVE: CASE EVENT DATE: 20180211
